FAERS Safety Report 8503639-7 (Version None)
Quarter: 2012Q3

REPORT INFORMATION
  Report Type: 
  Country: None (occurrence: None)
  Receive Date: 20120711
  Receipt Date: 20120710
  Transmission Date: 20120928
  Serious: Yes (Other)
  Sender: FDA-Public Use
  Company Number: PHHY2012CH039893

PATIENT
  Age: 45 Year
  Sex: Female

DRUGS (2)
  1. GILENYA [Suspect]
     Indication: RELAPSING-REMITTING MULTIPLE SCLEROSIS
     Dosage: 0.5 MG, QD
     Route: 048
     Dates: start: 20120207
  2. GILENYA [Suspect]
     Dosage: 0.5 MG EVERY 2 DAYS
     Route: 048
     Dates: start: 20120323, end: 20120501

REACTIONS (5)
  - BRONCHITIS [None]
  - DIZZINESS [None]
  - INAPPROPRIATE SCHEDULE OF DRUG ADMINISTRATION [None]
  - OPTIC NEURITIS [None]
  - LYMPHOPENIA [None]
